FAERS Safety Report 6439717-6 (Version None)
Quarter: 2009Q4

REPORT INFORMATION
  Report Type: 
  Country: None (occurrence: None)
  Receive Date: 20091113
  Receipt Date: 20091110
  Transmission Date: 20100525
  Serious: Yes (Life-Threatening, Hospitalization)
  Sender: FDA-Public Use
  Company Number: ES-ELI_LILLY_AND_COMPANY-ES200702001088

PATIENT
  Age: 64 Year
  Sex: Female

DRUGS (2)
  1. GEMZAR [Suspect]
     Indication: OVARIAN CANCER
     Dosage: 180 MG, WEEKLY (1/W)
     Route: 042
     Dates: start: 20051020
  2. TAXOL [Concomitant]
     Indication: METASTASES TO OVARY
     Dosage: 140 MG, 2/M
     Route: 042
     Dates: start: 20051020

REACTIONS (2)
  - MYOSITIS [None]
  - RHABDOMYOLYSIS [None]
